FAERS Safety Report 8482199-3 (Version None)
Quarter: 2012Q3

REPORT INFORMATION
  Report Type: 
  Country: None (occurrence: None)
  Receive Date: 20120702
  Receipt Date: 20120620
  Transmission Date: 20120928
  Serious: Yes (Other)
  Sender: FDA-Public Use
  Company Number: US-SANOFI-AVENTIS-2012SA042628

PATIENT
  Sex: Male

DRUGS (2)
  1. NOVOLOG [Suspect]
     Route: 065
  2. LANTUS [Suspect]
     Route: 058

REACTIONS (3)
  - BLINDNESS [None]
  - WRONG DRUG ADMINISTERED [None]
  - HYPOGLYCAEMIA [None]
